FAERS Safety Report 23024402 (Version 1)
Quarter: 2023Q4

REPORT INFORMATION
  Report Type: Spontaneous
  Country: CA (occurrence: CA)
  Receive Date: 20231004
  Receipt Date: 20231004
  Transmission Date: 20240110
  Serious: Yes (Other)
  Sender: FDA-Public Use
  Company Number: CA-AUROBINDO-AUR-APL-2023-061062

PATIENT
  Age: 5 Day
  Sex: Male

DRUGS (10)
  1. VALGANCICLOVIR [Suspect]
     Active Substance: VALGANCICLOVIR
     Indication: Congenital cytomegalovirus infection
     Dosage: 16 MILLIGRAM, ONCE A DAY
     Route: 048
  2. GANCICLOVIR [Suspect]
     Active Substance: GANCICLOVIR
     Indication: Congenital cytomegalovirus infection
     Dosage: 2.5 MILLIGRAM/KILOGRAM, ONCE A DAY
     Route: 042
  3. VALGANCICLOVIR [Suspect]
     Active Substance: VALGANCICLOVIR
     Indication: Congenital cytomegalovirus infection
     Dosage: 7.1 MILLIGRAM/KILOGRAM, TWO TIMES A DAY
     Route: 048
  4. VALGANCICLOVIR [Suspect]
     Active Substance: VALGANCICLOVIR
     Dosage: 9.0 MILLIGRAM/KILOGRAM, TWO TIMES A DAY
     Route: 048
  5. GANCICLOVIR [Suspect]
     Active Substance: GANCICLOVIR
     Indication: Congenital cytomegalovirus infection
     Dosage: 2.8 MILLIGRAM/KILOGRAM, TWO TIMES A DAY
     Route: 042
  6. GANCICLOVIR [Suspect]
     Active Substance: GANCICLOVIR
     Dosage: 2.7 MILLIGRAM/KILOGRAM, TWO TIMES A DAY
     Route: 042
  7. GANCICLOVIR [Suspect]
     Active Substance: GANCICLOVIR
     Dosage: 2.1 MILLIGRAM/KILOGRAM, ONCE A DAY
     Route: 042
  8. GANCICLOVIR [Suspect]
     Active Substance: GANCICLOVIR
     Dosage: 2.0 MILLIGRAM/KILOGRAM, TWO TIMES A DAY
     Route: 042
  9. GANCICLOVIR [Suspect]
     Active Substance: GANCICLOVIR
     Dosage: 1.9 MILLIGRAM/KILOGRAM (1 EVERY 18 HOURS)
     Route: 042
  10. GANCICLOVIR [Suspect]
     Active Substance: GANCICLOVIR
     Dosage: 2.3 MILLIGRAM/KILOGRAM, ONCE A DAY
     Route: 042

REACTIONS (3)
  - Neutropenia [Unknown]
  - Thrombocytopenia [Unknown]
  - Off label use [Unknown]
